FAERS Safety Report 6829544-X (Version None)
Quarter: 2010Q3

REPORT INFORMATION
  Report Type: 
  Country: None (occurrence: None)
  Receive Date: 20100709
  Receipt Date: 20070326
  Transmission Date: 20110219
  Serious: No
  Sender: FDA-Public Use
  Company Number: US-PFIZER INC-2007008781

PATIENT
  Sex: Female
  Weight: 54.4 kg

DRUGS (5)
  1. CHANTIX [Suspect]
     Indication: SMOKING CESSATION THERAPY
     Dates: start: 20070114, end: 20070128
  2. ENALAPRIL [Concomitant]
     Indication: HYPERTENSION
  3. ACETYLSALICYLIC ACID [Concomitant]
  4. FISH OIL [Concomitant]
     Indication: BLOOD CHOLESTEROL INCREASED
  5. LIPITOR [Concomitant]

REACTIONS (1)
  - NAUSEA [None]
